FAERS Safety Report 7906493-7 (Version None)
Quarter: 2011Q4

REPORT INFORMATION
  Report Type: 
  Country: None (occurrence: None)
  Receive Date: 20111110
  Receipt Date: 20111101
  Transmission Date: 20120403
  Serious: Yes (Hospitalization)
  Sender: FDA-Public Use
  Company Number: US-JNJFOC-20110712044

PATIENT
  Sex: Female
  Weight: 24 kg

DRUGS (6)
  1. REMICADE [Suspect]
     Route: 042
     Dates: start: 20101111, end: 20101111
  2. MERCAPTOPURINE [Concomitant]
  3. REMICADE [Suspect]
     Route: 042
     Dates: start: 20110218
  4. REMICADE [Suspect]
     Indication: CROHN'S DISEASE
     Route: 042
     Dates: start: 20080814
  5. IRON [Concomitant]
  6. MULTI-VITAMINS [Concomitant]

REACTIONS (1)
  - FAILURE TO THRIVE [None]
